FAERS Safety Report 20957560 (Version 3)
Quarter: 2023Q1

REPORT INFORMATION
  Report Type: Spontaneous
  Country: US (occurrence: US)
  Receive Date: 20220614
  Receipt Date: 20230214
  Transmission Date: 20230418
  Serious: Yes (Hospitalization)
  Sender: FDA-Public Use
  Company Number: US-PFIZER INC-2020401429

PATIENT
  Age: 78 Year
  Sex: Female

DRUGS (2)
  1. BRAFTOVI [Suspect]
     Active Substance: ENCORAFENIB
     Indication: Neoplasm malignant
     Dosage: 450 MG, DAILY
  2. MEKTOVI [Suspect]
     Active Substance: BINIMETINIB
     Indication: Neoplasm malignant
     Dosage: 45 MG, 2X/DAY

REACTIONS (4)
  - General physical health deterioration [Unknown]
  - Laryngitis [Unknown]
  - Product dispensing error [Unknown]
  - Intentional product misuse [Unknown]
